FAERS Safety Report 9365290 (Version 2)
Quarter: 2014Q1

REPORT INFORMATION
  Report Type: Report from Study
  Country: DE (occurrence: DE)
  Receive Date: 20130625
  Receipt Date: 20140108
  Transmission Date: 20141002
  Serious: Yes (Hospitalization, Other)
  Sender: FDA-Public Use
  Company Number: DE-ROCHE-1240545

PATIENT
  Age: 75 Year
  Sex: Female
  Weight: 64 kg

DRUGS (13)
  1. BEVACIZUMAB [Suspect]
     Indication: BREAST CANCER
     Route: 042
     Dates: start: 20130122
  2. BEVACIZUMAB [Suspect]
     Route: 042
     Dates: start: 20130430
  3. PACLITAXEL [Suspect]
     Indication: BREAST CANCER
     Route: 042
     Dates: start: 20130122
  4. PACLITAXEL [Suspect]
     Route: 042
     Dates: start: 20130129
  5. PACLITAXEL [Suspect]
     Route: 042
     Dates: start: 20130219
  6. PACLITAXEL [Suspect]
     Route: 042
     Dates: start: 20130226
  7. PACLITAXEL [Suspect]
     Route: 042
     Dates: start: 20130305
  8. PACLITAXEL [Suspect]
     Route: 042
     Dates: start: 20130319
  9. PACLITAXEL [Suspect]
     Route: 042
     Dates: start: 20130326
  10. PACLITAXEL [Suspect]
     Route: 042
     Dates: start: 20130403
  11. PACLITAXEL [Suspect]
     Route: 042
     Dates: start: 20130416
  12. PACLITAXEL [Suspect]
     Route: 042
     Dates: start: 20130423
  13. PACLITAXEL [Suspect]
     Route: 042
     Dates: start: 20130430

REACTIONS (2)
  - Metastases to spine [Not Recovered/Not Resolved]
  - Pathological fracture [Not Recovered/Not Resolved]
